FAERS Safety Report 4543635-8 (Version None)
Quarter: 2005Q1

REPORT INFORMATION
  Report Type: 
  Country: None (occurrence: None)
  Receive Date: 20050103
  Receipt Date: 20041229
  Transmission Date: 20050727
  Serious: Yes (Other)
  Sender: FDA-Public Use
  Company Number: DE-GLAXOSMITHKLINE-D0045550A

PATIENT
  Age: 51 Year
  Sex: Female
  Weight: 80 kg

DRUGS (2)
  1. LAMICTAL [Suspect]
     Route: 048
  2. PIRACETAM [Suspect]
     Route: 048

REACTIONS (3)
  - INTENTIONAL MISUSE [None]
  - MYDRIASIS [None]
  - SUICIDE ATTEMPT [None]
